FAERS Safety Report 7774215-9 (Version None)
Quarter: 2011Q3

REPORT INFORMATION
  Report Type: 
  Country: None (occurrence: None)
  Receive Date: 20110923
  Receipt Date: 20110919
  Transmission Date: 20111222
  Serious: Yes (Other)
  Sender: FDA-Public Use
  Company Number: US-PFIZER INC-2011130739

PATIENT
  Sex: Female
  Weight: 56 kg

DRUGS (5)
  1. CHANTIX [Suspect]
     Dosage: 1 MG, 2X/DAY
     Route: 048
     Dates: start: 20110501, end: 20110101
  2. CHANTIX [Suspect]
     Dosage: 1 MG, 2X/DAY
     Dates: start: 20110101, end: 20110612
  3. CHANTIX [Suspect]
     Indication: SMOKING CESSATION THERAPY
     Dosage: 0.5 MG, 1X/DAY
     Dates: start: 20110501, end: 20110501
  4. FLUTICASONE PROPIONATE [Concomitant]
     Dosage: 2 DF, 1X/DAY
  5. AMBIEN [Concomitant]
     Dosage: 10 MG, 1X/DAY AT BEDTIME

REACTIONS (15)
  - ARTHRALGIA [None]
  - RIB FRACTURE [None]
  - AORTIC CALCIFICATION [None]
  - DYSPNOEA [None]
  - VISUAL IMPAIRMENT [None]
  - DRY EYE [None]
  - ABNORMAL DREAMS [None]
  - HEADACHE [None]
  - THIRST [None]
  - PALPITATIONS [None]
  - HYPOAESTHESIA [None]
  - BONE PAIN [None]
  - PAIN [None]
  - RETINAL ARTERY OCCLUSION [None]
  - RAYNAUD'S PHENOMENON [None]
